FAERS Safety Report 8058357-9 (Version None)
Quarter: 2012Q1

REPORT INFORMATION
  Report Type: 
  Country: None (occurrence: None)
  Receive Date: 20120120
  Receipt Date: 20120109
  Transmission Date: 20120608
  Serious: Yes (Other)
  Sender: FDA-Public Use
  Company Number: CA-ELI_LILLY_AND_COMPANY-CA201201002301

PATIENT
  Age: 74 Year
  Sex: Male
  Weight: 91.156 kg

DRUGS (6)
  1. CYMBALTA [Suspect]
     Dosage: 30 MG, QD
     Route: 048
  2. ADVAIR DISKUS 100/50 [Concomitant]
     Route: 055
  3. PANTOPRAZOLE [Concomitant]
     Dosage: UNK
     Route: 048
  4. VENTOLIN [Concomitant]
     Route: 055
  5. LORAZEPAM [Concomitant]
     Route: 048
  6. TRAMADOL HCL [Concomitant]
     Route: 048

REACTIONS (4)
  - MUSCLE SPASTICITY [None]
  - NOCTURIA [None]
  - INSOMNIA [None]
  - TACHYPHRENIA [None]
